FAERS Safety Report 23256226 (Version 1)
Quarter: 2023Q4

REPORT INFORMATION
  Report Type: Spontaneous
  Country: US (occurrence: US)
  Receive Date: 20231204
  Receipt Date: 20231204
  Transmission Date: 20240109
  Serious: Yes (Life-Threatening, Hospitalization, Other)
  Sender: FDA-Public Use
  Company Number: US-drreddys-SPO/USA/23/0187680

PATIENT
  Age: 40 Year
  Sex: Female

DRUGS (2)
  1. CLOZAPINE [Suspect]
     Active Substance: CLOZAPINE
     Indication: Schizoaffective disorder
     Dosage: FOR AT LEAST 10 YEARS
     Dates: start: 2011, end: 2021
  2. CLOZAPINE [Suspect]
     Active Substance: CLOZAPINE
     Dosage: RESTARTED WITH REDUCED DAILY DOSE
     Dates: start: 202107

REACTIONS (4)
  - Shock [Unknown]
  - Brain hypoxia [Unknown]
  - Cardiac arrest [Unknown]
  - Drug dose titration not performed [Unknown]
